FAERS Safety Report 21082009 (Version 1)
Quarter: 2022Q3

REPORT INFORMATION
  Report Type: Other
  Country: None (occurrence: US)
  Receive Date: 20220714
  Receipt Date: 20220714
  Transmission Date: 20221027
  Serious: Yes (Other)
  Sender: FDA-Public Use
  Company Number: US-CHEMI SPA-2130865

PATIENT
  Age: 33 Year
  Sex: Male

DRUGS (4)
  1. DECITABINE [Suspect]
     Active Substance: DECITABINE
     Indication: Myeloid leukaemia
  2. VENETOCLAX [Suspect]
     Active Substance: VENETOCLAX
  3. ACYCLOVIR [Concomitant]
     Active Substance: ACYCLOVIR
  4. VORICONAZOLE [Concomitant]
     Active Substance: VORICONAZOLE

REACTIONS (3)
  - Sinusitis fungal [Recovered/Resolved]
  - Neutropenia [Not Recovered/Not Resolved]
  - Pancytopenia [Unknown]
